FAERS Safety Report 21339548 (Version 1)
Quarter: 2022Q3

REPORT INFORMATION
  Report Type: Spontaneous
  Country: US (occurrence: US)
  Receive Date: 20220915
  Receipt Date: 20220915
  Transmission Date: 20221027
  Serious: No
  Sender: FDA-Public Use
  Company Number: US-SA-SAC20220912000385

PATIENT
  Sex: Female

DRUGS (1)
  1. DUPIXENT [Suspect]
     Active Substance: DUPILUMAB
     Dosage: 300 MG,OTHER
     Route: 058

REACTIONS (5)
  - Condition aggravated [Unknown]
  - Therapeutic product effect decreased [Unknown]
  - Dry skin [Unknown]
  - Pruritus [Unknown]
  - Injection site irritation [Unknown]
